FAERS Safety Report 4812735-7 (Version None)
Quarter: 2005Q4

REPORT INFORMATION
  Report Type: 
  Country: None (occurrence: None)
  Receive Date: 20051028
  Receipt Date: 20041111
  Transmission Date: 20060501
  Serious: No
  Sender: FDA-Public Use
  Company Number: US-GLAXOSMITHKLINE-A0533613A

PATIENT
  Age: 56 Year
  Sex: Female

DRUGS (11)
  1. ADVAIR DISKUS 100/50 [Suspect]
     Indication: DRUG USE FOR UNKNOWN INDICATION
     Dosage: 1PUFF AS REQUIRED
     Route: 055
     Dates: start: 20040801, end: 20041002
  2. HERCEPTIN [Concomitant]
  3. HYDROCODONE [Concomitant]
  4. ZOLOFT [Concomitant]
  5. TRAZODONE HCL [Concomitant]
  6. CLONAZEPAM [Concomitant]
  7. VITAMIN E [Concomitant]
  8. VITAMIN B6 [Concomitant]
  9. KYTRIL [Concomitant]
  10. XELODA [Concomitant]
  11. ADVIL [Concomitant]

REACTIONS (1)
  - TINNITUS [None]
